FAERS Safety Report 16407308 (Version 1)
Quarter: 2019Q2

REPORT INFORMATION
  Report Type: Spontaneous
  Country: US (occurrence: US)
  Receive Date: 20190608
  Receipt Date: 20190608
  Transmission Date: 20190711
  Serious: No
  Sender: FDA-Public Use
  Company Number: US-ELI_LILLY_AND_COMPANY-US201906000792

PATIENT
  Sex: Female

DRUGS (1)
  1. TALTZ [Suspect]
     Active Substance: IXEKIZUMAB
     Indication: PRODUCT USED FOR UNKNOWN INDICATION
     Dosage: 80 MG, UNKNOWN
     Route: 058
     Dates: start: 201905

REACTIONS (5)
  - Injection site induration [Unknown]
  - Injection site bruising [Unknown]
  - Wrong dose [Unknown]
  - Injection site erythema [Unknown]
  - Injection site pruritus [Unknown]
